FAERS Safety Report 4352676-5 (Version None)
Quarter: 2004Q2

REPORT INFORMATION
  Report Type: 
  Country: None (occurrence: None)
  Receive Date: 20040429
  Receipt Date: 20040416
  Transmission Date: 20050107
  Serious: Yes (Hospitalization)
  Sender: FDA-Public Use
  Company Number: 2004-0006921

PATIENT
  Age: 35 Year
  Sex: Female

DRUGS (4)
  1. VISTIDE [Suspect]
     Indication: CYTOMEGALOVIRUS CHORIORETINITIS
     Dosage: 1 N 2 WK
     Dates: start: 20030601
  2. VIREAD [Suspect]
     Indication: HIV INFECTION
  3. CRIXIVAN [Concomitant]
  4. PROBENECID [Concomitant]

REACTIONS (6)
  - CD4 LYMPHOCYTES DECREASED [None]
  - CONVULSION [None]
  - GLYCOSURIA [None]
  - HAEMODIALYSIS [None]
  - RENAL FAILURE ACUTE [None]
  - RENAL TUBULAR NECROSIS [None]
